FAERS Safety Report 5477898-1 (Version None)
Quarter: 2007Q4

REPORT INFORMATION
  Report Type: 
  Country: None (occurrence: None)
  Receive Date: 20071005
  Receipt Date: 20071002
  Transmission Date: 20080405
  Serious: Yes (Life-Threatening, Hospitalization, Disabling, Other)
  Sender: FDA-Public Use
  Company Number: PHEH2007US06132

PATIENT
  Age: 57 Year
  Sex: Female
  Weight: 70.748 kg

DRUGS (32)
  1. ZELNORM [Suspect]
     Indication: CONSTIPATION
     Dosage: 1 DF, QD
     Route: 048
     Dates: start: 20050729, end: 20061101
  2. ZELNORM [Suspect]
     Dosage: 2 DF, QD
     Dates: start: 20061101, end: 20061101
  3. NITROSTAT [Concomitant]
     Dosage: PRN
  4. PHRENILIN [Concomitant]
     Indication: HEADACHE
     Dosage: PRN
  5. ACYCLOVIR [Concomitant]
     Dosage: 400MG TID
  6. TRIAMCINOLONE [Concomitant]
     Indication: ECZEMA
     Dosage: PRN
  7. CORRECTOL [Concomitant]
     Dosage: 2 DF, UNK
     Dates: start: 20061113
  8. VICODIN [Concomitant]
     Dosage: 1-2 TABS Q6H PRN
  9. EPIPEN [Concomitant]
     Indication: HYPERSENSITIVITY
     Dosage: PRN
  10. FLEXERIL [Concomitant]
     Indication: MUSCLE SPASMS
     Dosage: TID PRN
     Dates: start: 20021220
  11. PATANOL [Concomitant]
     Indication: HYPERSENSITIVITY
     Dosage: 1GTT BID PRN
  12. ATIVAN [Concomitant]
     Dosage: 1MG QHS PRN
  13. ZESTRIL [Concomitant]
     Indication: HYPERTENSION
     Dosage: 10MG BID
     Route: 048
     Dates: start: 20021220
  14. LASIX [Concomitant]
     Dosage: 40MG QD MON, THUR, SAT
     Route: 048
     Dates: start: 20050729
  15. KLOR-CON [Concomitant]
     Dosage: 10MEQ BID MON, THUR, SAT
     Dates: start: 20050729
  16. TOPROL-XL [Concomitant]
     Indication: HYPERTENSION
     Dosage: 25MG QPM
     Route: 048
     Dates: start: 20021220
  17. ZOCOR [Concomitant]
     Indication: CORONARY ARTERY DISEASE
     Dosage: 20MG QD
     Route: 048
     Dates: start: 20021220
  18. ERYTHROMYCIN [Concomitant]
     Dosage: 50MG QD
  19. ELAVIL [Concomitant]
     Dosage: 30MG QHS
  20. ELAVIL [Concomitant]
     Dosage: 10MG HS
  21. ALLEGRA [Concomitant]
     Dosage: 60MG BID
  22. VITAMIN CAP [Concomitant]
     Dosage: QD
  23. ASPIRIN [Concomitant]
     Dosage: 81MG QD
  24. CALCIUM [Concomitant]
     Dosage: 600MG BID
  25. FOLIC ACID [Concomitant]
     Dosage: 800MCG QD
  26. ASCORBIC ACID [Concomitant]
     Dosage: 500MG QD
  27. METAMUCIL [Concomitant]
     Dosage: 6 CAPS QD
  28. GLUCOSAMINE [Concomitant]
     Dosage: 500MG TID
  29. PREVACID [Concomitant]
     Dosage: 30MG QD
     Route: 048
     Dates: start: 20021220
  30. MIRALAX [Concomitant]
     Dosage: 17 GRAMS QD
  31. AMITRIPTYLINE HCL [Concomitant]
     Dosage: 30 MG, UNK
     Dates: start: 20021220
  32. AMITRIPTYLINE HCL [Concomitant]
     Dosage: 10 MG, UNK
     Dates: end: 20061218

REACTIONS (23)
  - ABDOMINAL PAIN [None]
  - ANAEMIA [None]
  - AORTIC ANEURYSM [None]
  - AORTIC BRUIT [None]
  - AZOTAEMIA [None]
  - CEREBROVASCULAR ACCIDENT [None]
  - COLD SWEAT [None]
  - COLITIS ISCHAEMIC [None]
  - CONFUSIONAL STATE [None]
  - CONSTIPATION [None]
  - DEPRESSION [None]
  - DIARRHOEA HAEMORRHAGIC [None]
  - DIZZINESS [None]
  - DYSPHAGIA [None]
  - GASTROINTESTINAL HAEMORRHAGE [None]
  - HAEMORRHAGIC ANAEMIA [None]
  - HEMIPLEGIA [None]
  - HYPERGLYCAEMIA [None]
  - HYPOTENSION [None]
  - INTERNATIONAL NORMALISED RATIO INCREASED [None]
  - NAUSEA [None]
  - PALLOR [None]
  - SYNCOPE [None]
